FAERS Safety Report 10592267 (Version 2)
Quarter: 2014Q4

REPORT INFORMATION
  Report Type: Report from Study
  Country: US (occurrence: US)
  Receive Date: 20141119
  Receipt Date: 20141119
  Transmission Date: 20150529
  Serious: No
  Sender: FDA-Public Use
  Company Number: US-AMGEN-USASL2014084932

PATIENT
  Age: 56 Year
  Sex: Female
  Weight: 70.3 kg

DRUGS (3)
  1. ENBREL [Suspect]
     Active Substance: ETANERCEPT
     Indication: RHEUMATOID ARTHRITIS
     Dosage: 50 MG, QWK
     Route: 058
     Dates: start: 20140929
  2. SULFASALAZINE. [Concomitant]
     Active Substance: SULFASALAZINE
     Indication: RHEUMATOID ARTHRITIS
     Dosage: 2 G, QD
  3. METHOTREXATE [Concomitant]
     Active Substance: METHOTREXATE
     Indication: RHEUMATOID ARTHRITIS
     Dosage: 22.5 MG, QWK
     Route: 048
     Dates: start: 20140319

REACTIONS (5)
  - Injection site warmth [Unknown]
  - Injection site swelling [Recovering/Resolving]
  - Injection site erythema [Recovering/Resolving]
  - Injection site discolouration [Unknown]
  - Injection site pruritus [Recovering/Resolving]

NARRATIVE: CASE EVENT DATE: 20141013
